FAERS Safety Report 4687822-7 (Version None)
Quarter: 2005Q2

REPORT INFORMATION
  Report Type: 
  Country: None (occurrence: None)
  Receive Date: 20050610
  Receipt Date: 20050527
  Transmission Date: 20051028
  Serious: Yes (Hospitalization)
  Sender: FDA-Public Use
  Company Number: FR-JNJFOC-20050202185

PATIENT
  Age: 80 Year
  Sex: Male

DRUGS (7)
  1. IXPRIM [Suspect]
     Indication: DRUG USE FOR UNKNOWN INDICATION
     Route: 049
  2. AUGMENTIN '125' [Suspect]
     Route: 049
     Dates: start: 20040929, end: 20041006
  3. AUGMENTIN '125' [Suspect]
     Indication: DRUG USE FOR UNKNOWN INDICATION
     Route: 049
     Dates: start: 20040929, end: 20041006
  4. CELESTENE [Concomitant]
     Route: 049
  5. ZESTRIL [Concomitant]
     Route: 049
  6. LASILIX [Concomitant]
     Route: 049
  7. LASILIX [Concomitant]
     Route: 049

REACTIONS (7)
  - CARDIAC FAILURE [None]
  - HAEMATURIA [None]
  - HAEMOGLOBIN INCREASED [None]
  - HYDROCELE [None]
  - HYPOPROTEINAEMIA [None]
  - NEPHROTIC SYNDROME [None]
  - WEIGHT INCREASED [None]
